FAERS Safety Report 6828600-X (Version None)
Quarter: 2010Q3

REPORT INFORMATION
  Report Type: 
  Country: None (occurrence: None)
  Receive Date: 20100702
  Receipt Date: 20100618
  Transmission Date: 20110219
  Serious: No
  Sender: FDA-Public Use
  Company Number: 014165

PATIENT
  Age: 9 Year
  Sex: Male

DRUGS (1)
  1. KEPPRA [Suspect]
     Dosage: (250 MG TID ORAL), (500 MG TID ORAL)
     Route: 048

REACTIONS (1)
  - DRUG INEFFECTIVE [None]
